FAERS Safety Report 8375746-3 (Version None)
Quarter: 2012Q2

REPORT INFORMATION
  Report Type: 
  Country: None (occurrence: None)
  Receive Date: 20120522
  Receipt Date: 20120515
  Transmission Date: 20120825
  Serious: Yes (Death, Hospitalization)
  Sender: FDA-Public Use
  Company Number: FR-BAYER-2012-047316

PATIENT
  Age: 72 Year
  Sex: Male

DRUGS (1)
  1. SORAFENIB (RAF KINASE INHIBITOR) [Suspect]
     Indication: HEPATIC NEOPLASM MALIGNANT
     Dosage: DOSE: 800MG/24 HR
     Dates: start: 20111018, end: 20111114

REACTIONS (6)
  - STAPHYLOCOCCAL SEPSIS [None]
  - MULTI-ORGAN FAILURE [None]
  - INFECTIOUS PERITONITIS [None]
  - LIVER ABSCESS [None]
  - PORTAL VEIN THROMBOSIS [None]
  - PLEURAL EFFUSION [None]
